FAERS Safety Report 5200360-8 (Version None)
Quarter: 2006Q4

REPORT INFORMATION
  Report Type: 
  Country: None (occurrence: None)
  Receive Date: 20061016
  Receipt Date: 20060718
  Transmission Date: 20070319
  Serious: No
  Sender: FDA-Public Use
  Company Number: 2006SP002739

PATIENT
  Age: 40 Year
  Sex: Female

DRUGS (5)
  1. LUNESTA [Suspect]
     Indication: INSOMNIA
     Dosage: 3 MG;HS;ORAL
     Route: 048
     Dates: start: 20060601, end: 20060712
  2. LITHIUM CARBONATE [Concomitant]
  3. URECHOLINE [Concomitant]
  4. ABILIFY [Concomitant]
  5. DAILY MULTIVITAMIN [Concomitant]

REACTIONS (4)
  - BRUXISM [None]
  - JOINT STIFFNESS [None]
  - MUSCLE TWITCHING [None]
  - TARDIVE DYSKINESIA [None]
